FAERS Safety Report 8866819 (Version 1)
Quarter: 2012Q4

REPORT INFORMATION
  Report Type: 
  Country: US (occurrence: US)
  Receive Date: 20121025
  Receipt Date: 20121025
  Transmission Date: 20130627
  Serious: No
  Sender: FDA-Public Use
  Company Number: US-AMGEN-USASP2012013505

PATIENT
  Sex: Female
  Weight: 79.37 kg

DRUGS (3)
  1. ENBREL [Suspect]
     Indication: PRODUCT USED FOR UNKNOWN INDICATION
     Dosage: 50 mg, qwk
     Route: 058
  2. PANTOPRAZOLE [Concomitant]
     Dosage: 20 mg, UNK
  3. VESICARE [Concomitant]
     Dosage: 5 mg, UNK

REACTIONS (3)
  - Increased appetite [Unknown]
  - Weight increased [Unknown]
  - Nasopharyngitis [Recovered/Resolved]
